FAERS Safety Report 9099267 (Version 2)
Quarter: 2013Q1

REPORT INFORMATION
  Report Type: Report from Study
  Country: DE (occurrence: DE)
  Receive Date: 20130213
  Receipt Date: 20130222
  Transmission Date: 20140127
  Serious: Yes (Hospitalization)
  Sender: FDA-Public Use
  Company Number: DE-SHIRE-ALL1-2013-00812

PATIENT
  Age: 29 Year
  Sex: Male
  Weight: 69.7 kg

DRUGS (1)
  1. IDURSULFASE [Suspect]
     Indication: MUCOPOLYSACCHARIDOSIS II
     Dosage: 36 MG, 1X/WEEK
     Route: 041
     Dates: start: 20080909

REACTIONS (1)
  - Hospitalisation [Recovering/Resolving]
